FAERS Safety Report 8017767-6 (Version None)
Quarter: 2012Q1

REPORT INFORMATION
  Report Type: 
  Country: None (occurrence: None)
  Receive Date: 20120103
  Receipt Date: 20111227
  Transmission Date: 20120608
  Serious: No
  Sender: FDA-Public Use
  Company Number: US-PFIZER INC-2011314773

PATIENT

DRUGS (2)
  1. ACYCLOVIR [Suspect]
     Dosage: UNK
  2. NEURONTIN [Suspect]
     Dosage: UNK

REACTIONS (5)
  - HERPES ZOSTER [None]
  - DIZZINESS [None]
  - DEPRESSED MOOD [None]
  - PAIN [None]
  - PRURITUS [None]
